FAERS Safety Report 5516362-8 (Version None)
Quarter: 2007Q4

REPORT INFORMATION
  Report Type: 
  Country: None (occurrence: None)
  Receive Date: 20071114
  Receipt Date: 20070207
  Transmission Date: 20080405
  Serious: No
  Sender: FDA-Public Use
  Company Number: A0638457A

PATIENT
  Age: 57 Year
  Sex: Female

DRUGS (2)
  1. COMMIT [Suspect]
     Dates: start: 20070204, end: 20070204
  2. NICORETTE [Suspect]

REACTIONS (3)
  - NAUSEA [None]
  - ORAL DISCOMFORT [None]
  - THROAT IRRITATION [None]
